FAERS Safety Report 24685484 (Version 1)
Quarter: 2024Q4

REPORT INFORMATION
  Report Type: Spontaneous
  Country: US (occurrence: None)
  Receive Date: 20241127
  Receipt Date: 20241127
  Transmission Date: 20250115
  Serious: Yes (Hospitalization)
  Sender: Public
  Company Number: None

PATIENT
  Age: 73 Year
  Sex: Male

DRUGS (5)
  1. LENALIDOMIDE [Suspect]
     Active Substance: LENALIDOMIDE
     Indication: Plasma cell myeloma
     Dosage: 20MG QD
  2. DARZALEX [Suspect]
     Active Substance: DARATUMUMAB
  3. VELCADE [Suspect]
     Active Substance: BORTEZOMIB
  4. DEXAMETHASONE [Suspect]
     Active Substance: DEXAMETHASONE
  5. ACYCLOVIR [Suspect]
     Active Substance: ACYCLOVIR

REACTIONS (2)
  - Gastritis [None]
  - Constipation [None]
